FAERS Safety Report 24992189 (Version 2)
Quarter: 2025Q1

REPORT INFORMATION
  Report Type: Spontaneous
  Country: ES (occurrence: ES)
  Receive Date: 20250220
  Receipt Date: 20250318
  Transmission Date: 20250409
  Serious: Yes (Hospitalization, Other)
  Sender: TAIHO ONCOLOGY INC
  Company Number: ES-MMM-Otsuka-KEL8QTAH

PATIENT
  Age: 82 Year
  Sex: Male

DRUGS (2)
  1. INQOVI [Suspect]
     Active Substance: CEDAZURIDINE\DECITABINE
     Indication: Acute myeloid leukaemia
     Route: 048
  2. TENOFOVIR [Concomitant]
     Active Substance: TENOFOVIR
     Indication: Chronic hepatitis B
     Route: 065

REACTIONS (2)
  - Atrioventricular block complete [Recovered/Resolved]
  - Febrile neutropenia [Recovered/Resolved]

NARRATIVE: CASE EVENT DATE: 20241201
